FAERS Safety Report 9784456 (Version 2)
Quarter: 2014Q1

REPORT INFORMATION
  Report Type: Spontaneous
  Country: IT (occurrence: IT)
  Receive Date: 20131226
  Receipt Date: 20140117
  Transmission Date: 20141002
  Serious: Yes (Hospitalization)
  Sender: FDA-Public Use
  Company Number: IT-ABBVIE-13P-083-1183115-00

PATIENT
  Age: 92 Year
  Sex: Female

DRUGS (2)
  1. DEPAKIN [Suspect]
     Indication: EPILEPSY
     Route: 048
     Dates: start: 20130701, end: 20131028
  2. SIMVASTATIN [Concomitant]
     Indication: PRODUCT USED FOR UNKNOWN INDICATION
     Dates: start: 20121024, end: 20131024

REACTIONS (5)
  - Medication error [Recovering/Resolving]
  - Condition aggravated [Recovering/Resolving]
  - Alanine aminotransferase increased [Recovering/Resolving]
  - Aspartate aminotransferase increased [Recovering/Resolving]
  - Thrombocytopenia [Recovering/Resolving]
